FAERS Safety Report 23249635 (Version 1)
Quarter: 2023Q4

REPORT INFORMATION
  Report Type: Spontaneous
  Country: US (occurrence: US)
  Receive Date: 20231201
  Receipt Date: 20231201
  Transmission Date: 20240110
  Serious: Yes (Other)
  Sender: FDA-Public Use
  Company Number: US-STRIDES ARCOLAB LIMITED-2023SP017096

PATIENT
  Sex: Female

DRUGS (13)
  1. PREDNISOLONE [Suspect]
     Active Substance: PREDNISOLONE
     Indication: Immune thrombocytopenia
     Dosage: 40 MILLIGRAM; PER DAY
     Route: 065
  2. RITUXIMAB [Suspect]
     Active Substance: RITUXIMAB
     Indication: Immune thrombocytopenia
     Dosage: UNK
     Route: 065
  3. IMMUNE GLOBULIN NOS [Suspect]
     Active Substance: IMMUNE GLOBULIN NOS
     Indication: Immune thrombocytopenia
     Dosage: UNK
     Route: 042
  4. IMMUNE GLOBULIN NOS [Suspect]
     Active Substance: IMMUNE GLOBULIN NOS
     Dosage: UNK
     Route: 042
  5. ELTROMBOPAG [Concomitant]
     Active Substance: ELTROMBOPAG
     Indication: Immune thrombocytopenia
     Dosage: UNK
     Route: 065
  6. AVATROMBOPAG [Concomitant]
     Active Substance: AVATROMBOPAG
     Indication: Immune thrombocytopenia
     Dosage: 20 MILLIGRAM; PER DAY
     Route: 048
  7. AVATROMBOPAG [Concomitant]
     Active Substance: AVATROMBOPAG
     Dosage: 20 MILLIGRAM, QOD; EVERY OTHER DAY
     Route: 048
  8. AVATROMBOPAG [Concomitant]
     Active Substance: AVATROMBOPAG
     Dosage: 20 MILLIGRAM; PER DAY; INCREASED
     Route: 048
  9. AVATROMBOPAG [Concomitant]
     Active Substance: AVATROMBOPAG
     Dosage: 20 MILLIGRAM; PER DAY; INCREASED
     Route: 048
  10. AVATROMBOPAG [Concomitant]
     Active Substance: AVATROMBOPAG
     Dosage: 20 MILLIGRAM, QOD; EVERY OTHER DAY
     Route: 048
  11. AVATROMBOPAG [Concomitant]
     Active Substance: AVATROMBOPAG
     Dosage: UNK; REDUCED
     Route: 065
  12. APIXABAN [Concomitant]
     Active Substance: APIXABAN
     Indication: Renal vein thrombosis
     Dosage: UNK
     Route: 065
  13. APIXABAN [Concomitant]
     Active Substance: APIXABAN
     Indication: Aortic thrombosis

REACTIONS (1)
  - Treatment failure [Unknown]
